FAERS Safety Report 6274452-9 (Version None)
Quarter: 2009Q3

REPORT INFORMATION
  Report Type: 
  Country: None (occurrence: None)
  Receive Date: 20090716
  Receipt Date: 20090702
  Transmission Date: 20100115
  Serious: Yes (Hospitalization)
  Sender: FDA-Public Use
  Company Number: 2009-199954-NL

PATIENT
  Age: 27 Year
  Sex: Female
  Weight: 73.5 kg

DRUGS (3)
  1. FLONASE [Concomitant]
  2. ALLEGRA [Concomitant]
  3. NUVARING [Suspect]
     Indication: MENSTRUAL CYCLE MANAGEMENT

REACTIONS (2)
  - ARTERIAL DISORDER [None]
  - CAROTID ARTERY DISSECTION [None]
